FAERS Safety Report 14240973 (Version 1)
Quarter: 2017Q4

REPORT INFORMATION
  Report Type: Spontaneous
  Country: US (occurrence: US)
  Receive Date: 20171130
  Receipt Date: 20171130
  Transmission Date: 20180321
  Serious: No
  Sender: FDA-Public Use
  Company Number: US-ACTELION-A-US2017-163429

PATIENT
  Age: 16 Month
  Sex: Male

DRUGS (1)
  1. TRACLEER [Suspect]
     Active Substance: BOSENTAN
     Indication: PULMONARY ARTERIAL HYPERTENSION
     Dosage: 6.25 MG, Q12HRS
     Route: 048
     Dates: start: 20170706

REACTIONS (2)
  - No adverse event [Unknown]
  - Off label use [Unknown]
